FAERS Safety Report 19925878 (Version 1)
Quarter: 2021Q4

REPORT INFORMATION
  Report Type: Spontaneous
  Country: US (occurrence: US)
  Receive Date: 20211006
  Receipt Date: 20211006
  Transmission Date: 20220303
  Serious: No
  Sender: FDA-Public Use
  Company Number: US-PFIZER INC-202101289488

PATIENT

DRUGS (1)
  1. BINIMETINIB [Suspect]
     Active Substance: BINIMETINIB
     Dosage: UNK

REACTIONS (2)
  - Rash [Unknown]
  - Skin toxicity [Unknown]
